FAERS Safety Report 5560645-2 (Version None)
Quarter: 2007Q4

REPORT INFORMATION
  Report Type: 
  Country: None (occurrence: None)
  Receive Date: 20071215
  Receipt Date: 20071120
  Transmission Date: 20080405
  Serious: No
  Sender: FDA-Public Use
  Company Number: US-ABBOTT-07P-163-0426236-00

PATIENT
  Sex: Female
  Weight: 136.3 kg

DRUGS (4)
  1. HUMIRA [Suspect]
     Indication: PSORIATIC ARTHROPATHY
     Route: 058
     Dates: start: 20061101
  2. HYDROCHLOROTHIAZIDE [Concomitant]
     Indication: HYPERTENSION
     Route: 048
  3. VENLAFAXINE HCL [Concomitant]
     Indication: HOT FLUSH
     Route: 048
  4. ALEVE [Concomitant]
     Indication: ARTHRALGIA
     Route: 048

REACTIONS (5)
  - ACUTE SINUSITIS [None]
  - COUGH [None]
  - FATIGUE [None]
  - PYREXIA [None]
  - RHINORRHOEA [None]
